FAERS Safety Report 10488771 (Version 1)
Quarter: 2014Q4

REPORT INFORMATION
  Report Type: Spontaneous
  Country: US (occurrence: None)
  Receive Date: 20141001
  Receipt Date: 20141001
  Transmission Date: 20150528
  Serious: Yes (Hospitalization)
  Sender: FDA-Public Use
  Company Number: None

PATIENT
  Age: 28 Year
  Sex: Male
  Weight: 113.4 kg

DRUGS (1)
  1. PHENYTOIN. [Suspect]
     Active Substance: PHENYTOIN
     Indication: SEIZURE
     Dosage: 50 MG UD PO
     Route: 048
     Dates: start: 20140325, end: 20140512

REACTIONS (3)
  - Somnolence [None]
  - Delirium [None]
  - Seizure [None]

NARRATIVE: CASE EVENT DATE: 20140512
